FAERS Safety Report 9604307 (Version 2)
Quarter: 2013Q4

REPORT INFORMATION
  Report Type: Report from Study
  Country: US (occurrence: US)
  Receive Date: 20131008
  Receipt Date: 20131008
  Transmission Date: 20140711
  Serious: Yes (Death)
  Sender: FDA-Public Use
  Company Number: PHEH2013US019169

PATIENT
  Sex: Female
  Weight: 55.33 kg

DRUGS (7)
  1. AFINITOR [Suspect]
     Indication: BREAST CANCER
     Dosage: 10 MG, QD
     Route: 048
  2. EXEMESTANE [Concomitant]
     Dosage: 25 MG
     Route: 048
  3. ZYRTEC [Concomitant]
     Dosage: 10 MG
  4. HYDROCODIN [Concomitant]
     Route: 048
  5. ACETAZOLAMID [Concomitant]
     Dosage: 125 MG
     Route: 048
  6. HYDROCODONE W/APAP [Concomitant]
  7. ANTI DIARRHEAL [Concomitant]

REACTIONS (3)
  - Death [Fatal]
  - Weight decreased [Unknown]
  - Constipation [Unknown]
